FAERS Safety Report 13290959 (Version 1)
Quarter: 2017Q1

REPORT INFORMATION
  Report Type: Spontaneous
  Country: US (occurrence: US)
  Receive Date: 20170303
  Receipt Date: 20170303
  Transmission Date: 20170428
  Serious: Yes (Hospitalization)
  Sender: FDA-Public Use
  Company Number: US-AMGEN-USASP2017029737

PATIENT
  Sex: Female

DRUGS (2)
  1. ENBREL [Suspect]
     Active Substance: ETANERCEPT
     Indication: RHEUMATOID ARTHRITIS
     Dosage: 50 MG, QWK
     Route: 065
     Dates: start: 201209
  2. ENBREL [Suspect]
     Active Substance: ETANERCEPT
     Dosage: 50 MG, QWK
     Route: 065
     Dates: start: 201605

REACTIONS (11)
  - Urinary incontinence [Unknown]
  - Eczema [Unknown]
  - Pain [Unknown]
  - Gastrointestinal motility disorder [Unknown]
  - Dry skin [Not Recovered/Not Resolved]
  - Infection [Unknown]
  - Gastritis [Unknown]
  - Gastrointestinal disorder [Not Recovered/Not Resolved]
  - Local swelling [Unknown]
  - Surgery [Unknown]
  - Rash erythematous [Unknown]

NARRATIVE: CASE EVENT DATE: 201605
